FAERS Safety Report 14066838 (Version 2)
Quarter: 2017Q4

REPORT INFORMATION
  Report Type: Spontaneous
  Country: US (occurrence: US)
  Receive Date: 20171009
  Receipt Date: 20171120
  Transmission Date: 20180321
  Serious: Yes (Other)
  Sender: FDA-Public Use
  Company Number: US-ASTELLAS-2017US039927

PATIENT
  Age: 69 Year
  Sex: Male

DRUGS (1)
  1. XTANDI [Suspect]
     Active Substance: ENZALUTAMIDE
     Indication: PROSTATE CANCER METASTATIC
     Route: 048
     Dates: start: 20170701

REACTIONS (12)
  - Dysphagia [Recovering/Resolving]
  - Product physical issue [Unknown]
  - Pneumonia aspiration [Recovered/Resolved]
  - Dysphonia [Unknown]
  - Respiratory distress [Unknown]
  - Foreign body in respiratory tract [Unknown]
  - Wheezing [Recovered/Resolved]
  - Product size issue [Unknown]
  - Pneumonia [Unknown]
  - Secretion discharge [Unknown]
  - Cough [Recovering/Resolving]
  - Choking [Unknown]

NARRATIVE: CASE EVENT DATE: 201709
